FAERS Safety Report 9251169 (Version 1)
Quarter: 2013Q2

REPORT INFORMATION
  Report Type: Spontaneous
  Country: CN (occurrence: CN)
  Receive Date: 20130424
  Receipt Date: 20130424
  Transmission Date: 20140414
  Serious: Yes (Other)
  Sender: FDA-Public Use
  Company Number: CN-ASTELLAS-2013JP005311

PATIENT
  Sex: Female

DRUGS (1)
  1. VESICARE [Suspect]
     Indication: BLADDER SPASM
     Dosage: 10 MG, UID/QD
     Route: 048
     Dates: start: 2013, end: 2013

REACTIONS (1)
  - Tachycardia [Recovered/Resolved]
